FAERS Safety Report 12557408 (Version 1)
Quarter: 2016Q3

REPORT INFORMATION
  Report Type: Spontaneous
  Country: US (occurrence: US)
  Receive Date: 20160714
  Receipt Date: 20160714
  Transmission Date: 20161109
  Serious: No
  Sender: FDA-Public Use
  Company Number: US-009507513-1606USA012771

PATIENT
  Age: 76 Year
  Sex: Female
  Weight: 81.63 kg

DRUGS (15)
  1. HYDROCHLOROTHIAZIDE. [Suspect]
     Active Substance: HYDROCHLOROTHIAZIDE
     Indication: BLOOD PRESSURE MANAGEMENT
     Route: 048
  2. AMLODIPINE BESYLATE. [Suspect]
     Active Substance: AMLODIPINE BESYLATE
  3. TOPROL XL [Suspect]
     Active Substance: METOPROLOL SUCCINATE
     Indication: BLOOD PRESSURE MANAGEMENT
  4. SEPTRA DS [Suspect]
     Active Substance: SULFAMETHOXAZOLE\TRIMETHOPRIM
     Indication: URINARY TRACT INFECTION
  5. NORVASC [Suspect]
     Active Substance: AMLODIPINE BESYLATE
     Indication: HYPERTENSION
     Dosage: 10 MG CUTTING IN A HALF TABLET ORALLY EVERY EVENING
     Route: 048
  6. PRINIVIL [Suspect]
     Active Substance: LISINOPRIL
     Indication: BLOOD PRESSURE MANAGEMENT
     Route: 048
  7. EPINEPHRINE. [Suspect]
     Active Substance: EPINEPHRINE
  8. ATENOLOL. [Concomitant]
     Active Substance: ATENOLOL
     Indication: PULSE ABNORMAL
     Dosage: 25 MG, QPM
  9. NORVASC [Suspect]
     Active Substance: AMLODIPINE BESYLATE
     Dosage: 5 MG, UNK
     Route: 048
  10. XALATAN [Suspect]
     Active Substance: LATANOPROST
     Indication: GLAUCOMA
  11. LUMIGAN [Suspect]
     Active Substance: BIMATOPROST
     Indication: GLAUCOMA
  12. PARAFON FORTE [Suspect]
     Active Substance: CHLORZOXAZONE
     Indication: MUSCLE RELAXANT THERAPY
  13. XYLOCAINE [Suspect]
     Active Substance: LIDOCAINE HYDROCHLORIDE
  14. NEXIUM [Concomitant]
     Active Substance: ESOMEPRAZOLE MAGNESIUM
     Indication: DYSPEPSIA
  15. NEXIUM [Concomitant]
     Active Substance: ESOMEPRAZOLE MAGNESIUM
     Indication: IRRITABLE BOWEL SYNDROME

REACTIONS (12)
  - Rash [Unknown]
  - Palpitations [Unknown]
  - Adverse event [Unknown]
  - Back pain [Recovered/Resolved]
  - Cystitis [Recovered/Resolved]
  - Bladder disorder [Unknown]
  - Toxicity to various agents [Unknown]
  - Paranasal sinus discomfort [Unknown]
  - Feeling abnormal [Unknown]
  - Burning sensation [Unknown]
  - Drug hypersensitivity [Unknown]
  - Epistaxis [Unknown]

NARRATIVE: CASE EVENT DATE: 2006
